FAERS Safety Report 5625756-1 (Version None)
Quarter: 2008Q1

REPORT INFORMATION
  Report Type: 
  Country: None (occurrence: None)
  Receive Date: 20080214
  Receipt Date: 20080212
  Transmission Date: 20080703
  Serious: Yes (Death, Hospitalization, Other)
  Sender: FDA-Public Use
  Company Number: JP-BRISTOL-MYERS SQUIBB COMPANY-14073340

PATIENT
  Age: 57 Year
  Sex: Male
  Weight: 58 kg

DRUGS (4)
  1. CISPLATIN [Suspect]
     Indication: PLEURAL MESOTHELIOMA MALIGNANT
     Dosage: DRUG INTERRUPTED UNTIL 01-JUL-2007 2ND DOSE: 02-JUL-2007(5MG) 3RD DOSE: 09-AUG-2007
     Route: 042
     Dates: start: 20070215, end: 20070215
  2. ALIMTA [Suspect]
     Indication: PLEURAL MESOTHELIOMA MALIGNANT
     Dosage: DRUG INTERRUPTED UNTIL 01-JUL-2007 2ND DOSE: 02-JUL2007(550MG) 3RD DOSE: 09-AUG-2007
     Route: 042
     Dates: start: 20070215, end: 20070215
  3. PANVITAN [Concomitant]
     Dates: start: 20070206, end: 20070927
  4. VITAMIN B-12 [Concomitant]
     Dates: start: 20070206, end: 20070622

REACTIONS (8)
  - ANAEMIA [None]
  - EPISTAXIS [None]
  - HEPATIC FUNCTION ABNORMAL [None]
  - LYMPHOCYTE COUNT DECREASED [None]
  - MALIGNANT NEOPLASM PROGRESSION [None]
  - NEUTROPHIL COUNT DECREASED [None]
  - THROMBOCYTOPENIA [None]
  - WHITE BLOOD CELL COUNT DECREASED [None]
